FAERS Safety Report 21843047 (Version 1)
Quarter: 2023Q1

REPORT INFORMATION
  Report Type: Spontaneous
  Country: US (occurrence: US)
  Receive Date: 20230110
  Receipt Date: 20230110
  Transmission Date: 20230417
  Serious: No
  Sender: FDA-Public Use
  Company Number: US-PERRIGO-22US010959

PATIENT
  Age: 36 Year
  Sex: Female
  Weight: 49.887 kg

DRUGS (2)
  1. PERMETHRIN [Suspect]
     Active Substance: PERMETHRIN
     Indication: Accidental exposure to product
     Dosage: UNKNOWN, SINGLE
     Route: 061
     Dates: start: 20220804, end: 20220804
  2. SPIRONOLACTONE [Concomitant]
     Active Substance: SPIRONOLACTONE
     Indication: Acne
     Dosage: UNK
     Route: 065
     Dates: start: 2018

REACTIONS (1)
  - Chemical burn [Recovering/Resolving]

NARRATIVE: CASE EVENT DATE: 20220805
